FAERS Safety Report 4932661-2 (Version None)
Quarter: 2006Q1

REPORT INFORMATION
  Report Type: 
  Country: None (occurrence: None)
  Receive Date: 20060301
  Receipt Date: 20060220
  Transmission Date: 20060701
  Serious: Yes (Other)
  Sender: FDA-Public Use
  Company Number: 200610999BWH

PATIENT
  Age: 70 Year
  Sex: Male
  Weight: 95.2554 kg

DRUGS (9)
  1. NEXAVAR [Suspect]
     Indication: BONE NEOPLASM MALIGNANT
     Dosage: 200 MG, BID, ORAL; 400 MG, BID, ORAL
     Route: 048
     Dates: start: 20060101
  2. NEXAVAR [Suspect]
     Indication: RENAL CELL CARCINOMA STAGE UNSPECIFIED
     Dosage: 200 MG, BID, ORAL; 400 MG, BID, ORAL
     Route: 048
     Dates: start: 20060101
  3. NEXAVAR [Suspect]
     Indication: BONE NEOPLASM MALIGNANT
     Dosage: 200 MG, BID, ORAL; 400 MG, BID, ORAL
     Route: 048
     Dates: start: 20060201
  4. NEXAVAR [Suspect]
     Indication: RENAL CELL CARCINOMA STAGE UNSPECIFIED
     Dosage: 200 MG, BID, ORAL; 400 MG, BID, ORAL
     Route: 048
     Dates: start: 20060201
  5. MORPHINE [Concomitant]
  6. DILAUDID [Concomitant]
  7. ANTIBIOTIC [Concomitant]
  8. IRON [Concomitant]
  9. FE SUPPLEMENT [Concomitant]

REACTIONS (7)
  - ANOREXIA [None]
  - CONFUSIONAL STATE [None]
  - COUGH [None]
  - DISORIENTATION [None]
  - FATIGUE [None]
  - PHARYNGOLARYNGEAL PAIN [None]
  - STOMATITIS [None]
